FAERS Safety Report 6218161-0 (Version None)
Quarter: 2009Q2

REPORT INFORMATION
  Report Type: 
  Country: None (occurrence: None)
  Receive Date: 20090608
  Receipt Date: 20090530
  Transmission Date: 20091009
  Serious: Yes (Hospitalization)
  Sender: FDA-Public Use
  Company Number: PHHY2009MX21395

PATIENT
  Age: 77 Year
  Sex: Female

DRUGS (1)
  1. ACLASTA [Suspect]
     Indication: OSTEOPOROSIS
     Dosage: 1 INJECTION 5 MG/100 ML PER DAY
     Route: 042
     Dates: start: 20090201

REACTIONS (1)
  - HIP SURGERY [None]
